FAERS Safety Report 8761190 (Version 1)
Quarter: 2012Q4

REPORT INFORMATION
  Report Type: 
  Country: US (occurrence: US)
  Receive Date: 20120830
  Receipt Date: 20120830
  Transmission Date: 20130627
  Serious: Yes (Hospitalization)
  Sender: FDA-Public Use
  Company Number: US-MYLANLABS-2012S1017174

PATIENT
  Age: 53 Year
  Sex: Female

DRUGS (1)
  1. WARFARIN [Suspect]
     Indication: ANTICOAGULANT THERAPY
     Route: 065

REACTIONS (4)
  - Gastrointestinal haemorrhage [Unknown]
  - Haematuria [Unknown]
  - Coagulation test abnormal [Recovered/Resolved]
  - Drug hypersensitivity [Unknown]
